FAERS Safety Report 8795266 (Version 2)
Quarter: 2015Q1

REPORT INFORMATION
  Report Type: Report from Study
  Country: US (occurrence: US)
  Receive Date: 20120917
  Receipt Date: 20150315
  Transmission Date: 20150721
  Serious: Yes (Death)
  Sender: FDA-Public Use
  Company Number: US-ROCHE-1124345

PATIENT
  Sex: Female
  Weight: 65.65 kg

DRUGS (8)
  1. PROCRIT [Concomitant]
     Active Substance: ERYTHROPOIETIN
     Route: 058
  2. BENADRYL [Concomitant]
     Active Substance: DIPHENHYDRAMINE HYDROCHLORIDE
     Route: 042
  3. DECADRON [Concomitant]
     Active Substance: DEXAMETHASONE
     Dosage: 30 MINUTES PRIOR TO PACLITAXEL
     Route: 042
  4. AVASTIN [Suspect]
     Active Substance: BEVACIZUMAB
     Indication: MALIGNANT NEOPLASM OF UTERINE ADNEXA
  5. TAXOL [Concomitant]
     Active Substance: PACLITAXEL
     Dosage: IN 500 CC D5W OVER 3 HOURS
     Route: 042
  6. AVASTIN [Suspect]
     Active Substance: BEVACIZUMAB
     Indication: OVARIAN CANCER
     Dosage: IN 100 CC NS
     Route: 042
     Dates: start: 20070814
  7. CIMETIDINE [Concomitant]
     Active Substance: CIMETIDINE
     Dosage: 30 MINUTES PRIOR TO PACLITAXEL
     Route: 042
  8. ANZEMET [Concomitant]
     Active Substance: DOLASETRON MESYLATE
     Dosage: PRIOR TO CHEMOTHERAPY (15 MINUTES BEFORE CARBOPLATIN) ON DAY 1
     Route: 042

REACTIONS (5)
  - Decreased appetite [Unknown]
  - Off label use [Unknown]
  - Pain in extremity [Unknown]
  - Death [Fatal]
  - Abdominal distension [Unknown]
